FAERS Safety Report 25531606 (Version 1)
Quarter: 2025Q3

REPORT INFORMATION
  Report Type: Spontaneous
  Country: MX (occurrence: MX)
  Receive Date: 20250709
  Receipt Date: 20250709
  Transmission Date: 20251021
  Serious: Yes (Other)
  Sender: Norvium Bioscience
  Company Number: MX-Norvium Bioscience LLC-080362

PATIENT
  Age: 72 Year
  Sex: Female
  Weight: 0 kg

DRUGS (1)
  1. LEVOFLOXACIN [Suspect]
     Active Substance: LEVOFLOXACIN
     Indication: Pneumonia

REACTIONS (1)
  - Fixed eruption [Recovering/Resolving]
